FAERS Safety Report 19377006 (Version 3)
Quarter: 2021Q2

REPORT INFORMATION
  Report Type: Report from Study
  Country: ES (occurrence: ES)
  Receive Date: 20210604
  Receipt Date: 20210623
  Transmission Date: 20210717
  Serious: Yes (Death, Life-Threatening)
  Sender: FDA-Public Use
  Company Number: ES-G1-000307

PATIENT
  Age: 43 Year
  Sex: Female
  Weight: 131 kg

DRUGS (11)
  1. OXALIPLATIN. [Suspect]
     Active Substance: OXALIPLATIN
     Indication: COLON CANCER METASTATIC
     Dosage: TIME INTERVAL: CYCLICAL; 85 MG/M2
     Route: 041
     Dates: start: 20210528, end: 20210528
  2. 3930700 (GLOBALC3SEP20): SIBILLA [Concomitant]
     Indication: CONTRACEPTION
     Dosage: 2/0.03  MG
     Route: 048
  3. TRILACICLIB (G1T28 207) [Suspect]
     Active Substance: TRILACICLIB
     Indication: MYELOSUPPRESSION
     Dosage: TIME INTERVAL: CYCLICAL; 240 MG/M2 ON DAY 1 AND 2 OF EACH CYCLE
     Route: 041
     Dates: start: 20210529, end: 20210529
  4. 4005314 (GLOBALC3SEP20): NEXIUM MUPS [Concomitant]
     Indication: ANTACID THERAPY
     Route: 048
     Dates: start: 20210419
  5. 3852516 (GLOBALC3SEP20): ALDOLEO [Concomitant]
     Indication: HYPERTENSION
     Route: 048
     Dates: start: 20200904
  6. TRILACICLIB (G1T28 207) [Suspect]
     Active Substance: TRILACICLIB
     Indication: MYELOSUPPRESSION
     Dosage: TIME INTERVAL: CYCLICAL; 240 MG/M2 ON DAY 1 AND 2 OF EACH CYCLE
     Route: 041
     Dates: start: 20210528, end: 20210528
  7. IRINOTECAN [Suspect]
     Active Substance: IRINOTECAN
     Indication: COLON CANCER METASTATIC
     Dosage: TIME INTERVAL: CYCLICAL; 165MG/M2
     Dates: start: 20210528, end: 20210528
  8. LEUCOVORIN. [Suspect]
     Active Substance: LEUCOVORIN
     Indication: COLON CANCER METASTATIC
     Dosage: TIME INTERVAL: CYCLICAL; 200 MG/M2
     Route: 041
     Dates: start: 20210528, end: 20210528
  9. BEVACIZUMAB. [Suspect]
     Active Substance: BEVACIZUMAB
     Indication: COLON CANCER METASTATIC
     Dosage: TIME INTERVAL: CYCLICAL; 5 MG/KG
     Route: 041
     Dates: start: 20210528, end: 20210528
  10. FLUOROURACIL. [Suspect]
     Active Substance: FLUOROURACIL
     Indication: COLON CANCER METASTATIC
     Dosage: TIME INTERVAL: CYCLICAL; 3200 MG/M2
     Route: 041
     Dates: start: 20210528
  11. 1255681 (GLOBALC3SEP20): VANDRAL RETARD [Concomitant]
     Indication: ANTIDEPRESSANT THERAPY
     Route: 048
     Dates: start: 20210529

REACTIONS (1)
  - Pulmonary embolism [Fatal]

NARRATIVE: CASE EVENT DATE: 20210530
